FAERS Safety Report 21896985 (Version 1)
Quarter: 2023Q1

REPORT INFORMATION
  Report Type: Spontaneous
  Country: US (occurrence: US)
  Receive Date: 20230123
  Receipt Date: 20230123
  Transmission Date: 20230418
  Serious: Yes (Other)
  Sender: FDA-Public Use
  Company Number: US-STRIDES ARCOLAB LIMITED-2022SP009537

PATIENT
  Sex: Female

DRUGS (6)
  1. LIDOCAINE [Suspect]
     Active Substance: LIDOCAINE
     Indication: Ilioinguinal neuralgia
     Dosage: UNK
     Route: 061
  2. LIDOCAINE [Suspect]
     Active Substance: LIDOCAINE
     Indication: Pain
  3. LIDOCAINE [Suspect]
     Active Substance: LIDOCAINE
     Indication: Mononeuropathy
  4. CANNABIDIOL [Suspect]
     Active Substance: CANNABIDIOL
     Indication: Ilioinguinal neuralgia
     Dosage: UNK
     Route: 061
  5. CANNABIDIOL [Suspect]
     Active Substance: CANNABIDIOL
     Indication: Pain
  6. CANNABIDIOL [Suspect]
     Active Substance: CANNABIDIOL
     Indication: Mononeuropathy

REACTIONS (1)
  - Drug ineffective for unapproved indication [Unknown]
